FAERS Safety Report 9173351 (Version 1)
Quarter: 2013Q1

REPORT INFORMATION
  Report Type: Spontaneous
  Country: US (occurrence: None)
  Receive Date: 20130319
  Receipt Date: 20130319
  Transmission Date: 20140127
  Serious: Yes (Other)
  Sender: FDA-Public Use
  Company Number: None

PATIENT
  Age: 37 Year
  Sex: Female
  Weight: 53.98 kg

DRUGS (1)
  1. ESCITALOPRAM OXALATE [Suspect]
     Dates: start: 20130310, end: 20130314

REACTIONS (4)
  - Headache [None]
  - Depression [None]
  - Pain in extremity [None]
  - Muscle spasms [None]
